FAERS Safety Report 9814730 (Version 1)
Quarter: 2014Q1

REPORT INFORMATION
  Report Type: Spontaneous
  Country: US (occurrence: US)
  Receive Date: 20140113
  Receipt Date: 20140113
  Transmission Date: 20141002
  Serious: No
  Sender: FDA-Public Use
  Company Number: US-SANOFI-AVENTIS-2013SA043671

PATIENT
  Age: 69 Year
  Sex: Male

DRUGS (1)
  1. TAXOTERE [Suspect]
     Dates: start: 20120919

REACTIONS (2)
  - Nail bed infection [Not Recovered/Not Resolved]
  - Onychomadesis [Not Recovered/Not Resolved]
